FAERS Safety Report 9186311 (Version 1)
Quarter: 2013Q1

REPORT INFORMATION
  Report Type: Spontaneous
  Country: FR (occurrence: FR)
  Receive Date: 20130325
  Receipt Date: 20130325
  Transmission Date: 20140127
  Serious: Yes (Hospitalization)
  Sender: FDA-Public Use
  Company Number: FR-BAYER-2013-033611

PATIENT
  Age: 62 Year
  Sex: Male
  Weight: 80 kg

DRUGS (2)
  1. CIFLOX [Suspect]
     Dosage: UNK
     Route: 042
     Dates: start: 20130101, end: 20130124
  2. TAZOCILLINE [Suspect]
     Dosage: UNK
     Route: 042
     Dates: start: 20130101, end: 20130204

REACTIONS (6)
  - Drug reaction with eosinophilia and systemic symptoms [Recovering/Resolving]
  - Pyrexia [Recovered/Resolved]
  - Eosinophilia [Unknown]
  - Hepatitis cholestatic [Not Recovered/Not Resolved]
  - Renal failure acute [Not Recovered/Not Resolved]
  - Dermatitis exfoliative [Unknown]
